FAERS Safety Report 21179215 (Version 1)
Quarter: 2022Q3

REPORT INFORMATION
  Report Type: Spontaneous
  Country: NO (occurrence: NO)
  Receive Date: 20220805
  Receipt Date: 20220805
  Transmission Date: 20221026
  Serious: Yes (Hospitalization)
  Sender: FDA-Public Use
  Company Number: None

PATIENT

DRUGS (2)
  1. LAMICTAL [Suspect]
     Active Substance: LAMOTRIGINE
     Indication: Epilepsy
     Dosage: 175 MG, BID  (MOTHER USED 175 MG X 2 IN PREGNANCY. FROM 01/JUN/2022 THE DOSAGE WAS 200 MG + 175 MG)
     Route: 065
  2. LAMICTAL [Suspect]
     Active Substance: LAMOTRIGINE
     Dosage: UNK (MOTHER USED 175 MG X 2 IN PREGNANCY. FROM 01/JUN/2022 THE DOSAGE WAS 200 MG + 175 MG)
     Route: 065
     Dates: start: 20220601

REACTIONS (3)
  - Poor feeding infant [Recovering/Resolving]
  - Lethargy [Recovering/Resolving]
  - Foetal exposure during pregnancy [Recovering/Resolving]

NARRATIVE: CASE EVENT DATE: 20220709
